FAERS Safety Report 4615991-3 (Version None)
Quarter: 2005Q1

REPORT INFORMATION
  Report Type: 
  Country: None (occurrence: None)
  Receive Date: 20050323
  Receipt Date: 20050311
  Transmission Date: 20050727
  Serious: Yes (Other)
  Sender: FDA-Public Use
  Company Number: US-JNJFOC-20050303436

PATIENT
  Sex: Female
  Weight: 93.9 kg

DRUGS (9)
  1. REMICADE [Suspect]
     Route: 042
  2. REMICADE [Suspect]
     Indication: RHEUMATOID ARTHRITIS
     Route: 042
  3. METHOTREXATE [Concomitant]
     Route: 049
  4. CELEBREX [Concomitant]
     Route: 049
  5. FOLIC ACID [Concomitant]
     Route: 049
  6. XANAX [Concomitant]
     Route: 049
  7. PROZAC [Concomitant]
     Route: 049
  8. NEXIUM [Concomitant]
     Route: 049
  9. SYNTHROID [Concomitant]
     Route: 049

REACTIONS (2)
  - HAEMOPTYSIS [None]
  - INFLUENZA [None]
